FAERS Safety Report 11476462 (Version 2)
Quarter: 2015Q4

REPORT INFORMATION
  Report Type: Spontaneous
  Country: FR (occurrence: FR)
  Receive Date: 20150909
  Receipt Date: 20151015
  Transmission Date: 20160304
  Serious: Yes (Hospitalization, Other)
  Sender: FDA-Public Use
  Company Number: FR-ASTRAZENECA-2015SE85341

PATIENT
  Age: 5814 Day
  Sex: Male

DRUGS (11)
  1. OMEPRAZOLE. [Suspect]
     Active Substance: OMEPRAZOLE
     Route: 048
     Dates: start: 20150717, end: 20150723
  2. PROGRAF [Concomitant]
     Active Substance: TACROLIMUS\TACROLIMUS ANHYDROUS
     Dates: start: 20150630, end: 20150702
  3. ZELITREX [Concomitant]
     Active Substance: VALACYCLOVIR HYDROCHLORIDE
     Dates: start: 201504, end: 20150629
  4. KALEORID [Concomitant]
     Active Substance: POTASSIUM CHLORIDE
     Route: 048
     Dates: start: 20150717
  5. TRAMADOL. [Suspect]
     Active Substance: TRAMADOL
     Route: 048
     Dates: start: 20150717, end: 201507
  6. PARACETAMOL [Suspect]
     Active Substance: ACETAMINOPHEN
     Route: 048
     Dates: start: 20150717, end: 201507
  7. PROGRAF [Concomitant]
     Active Substance: TACROLIMUS\TACROLIMUS ANHYDROUS
     Dates: start: 201504
  8. SOLUPRED [Concomitant]
     Active Substance: PREDNISOLONE
     Route: 048
     Dates: start: 20150702
  9. INEXIUM [Suspect]
     Active Substance: ESOMEPRAZOLE
     Route: 048
     Dates: start: 201504, end: 20150717
  10. MYCOPHENOLATE MOFETIL. [Concomitant]
     Active Substance: MYCOPHENOLATE MOFETIL
     Route: 048
     Dates: start: 201504, end: 20150702
  11. MYCOPHENOLATE MOFETIL. [Concomitant]
     Active Substance: MYCOPHENOLATE MOFETIL
     Route: 048
     Dates: start: 20150702

REACTIONS (5)
  - Agranulocytosis [Recovered/Resolved]
  - Leukopenia [Unknown]
  - Anaemia [Unknown]
  - Acute kidney injury [Unknown]
  - Epstein-Barr virus infection [Unknown]

NARRATIVE: CASE EVENT DATE: 20150629
